FAERS Safety Report 8769766 (Version 2)
Quarter: 2013Q1

REPORT INFORMATION
  Report Type: Report from Study
  Country: JP (occurrence: JP)
  Receive Date: 20120905
  Receipt Date: 20130204
  Transmission Date: 20140127
  Serious: Yes (Hospitalization)
  Sender: FDA-Public Use
  Company Number: JP-009507513-1208JPN009731

PATIENT
  Age: 64 Year
  Sex: Male
  Weight: 57 kg

DRUGS (15)
  1. PEGINTRON [Suspect]
     Indication: CHRONIC HEPATITIS C
     Dosage: 1.5 MICROGRAM PER KILOGRAM, QW
     Route: 058
     Dates: start: 20120508, end: 20120619
  2. REBETOL [Suspect]
     Indication: CHRONIC HEPATITIS C
     Dosage: 600 MG, QD
     Route: 048
     Dates: start: 20120508, end: 20120521
  3. REBETOL [Suspect]
     Dosage: 400 MG, QD
     Route: 048
     Dates: start: 20120522, end: 20120528
  4. REBETOL [Suspect]
     Dosage: 200 MG, QD
     Route: 048
     Dates: start: 20120529, end: 20120619
  5. TELAVIC [Suspect]
     Indication: CHRONIC HEPATITIS C
     Dosage: 2250 MG, QD
     Route: 048
     Dates: start: 20120508, end: 20120611
  6. TELAVIC [Suspect]
     Dosage: 1500 MG, QD
     Route: 048
     Dates: start: 20120612, end: 20120619
  7. ANTEBATE [Concomitant]
     Indication: PROPHYLAXIS
     Dosage: SINGLE USE
     Route: 061
     Dates: start: 20120508, end: 20120727
  8. HIRUDOID [Concomitant]
     Indication: PROPHYLAXIS
     Dosage: UNK, PRN
     Route: 061
     Dates: start: 20120508, end: 20120727
  9. LOCOID [Concomitant]
     Indication: PROPHYLAXIS
     Dosage: 30 MG, UNK
     Route: 061
     Dates: start: 20120508, end: 20120727
  10. VOLMAGEN [Concomitant]
     Indication: NAUSEA
     Dosage: 25 MG, QD, SINGLE USE
     Route: 061
     Dates: start: 20120619, end: 20120621
  11. NAUZELIN [Concomitant]
     Dosage: 30 MG, QD, SINGLE USE
     Dates: start: 20120512
  12. GASMOTIN [Concomitant]
     Dosage: 100 MG, QD
     Route: 048
     Dates: end: 20120621
  13. GASMOTIN [Concomitant]
     Dosage: 5 MG, QD
     Route: 048
  14. PROTECADIN [Concomitant]
     Dosage: 20 MG, QD
     Route: 048
     Dates: end: 20120721
  15. TALION (BEPOTASTINE BESYLATE) [Concomitant]
     Dosage: 10 MG, QD
     Route: 048
     Dates: end: 20120721

REACTIONS (1)
  - Rash [Recovered/Resolved]
